FAERS Safety Report 21740963 (Version 3)
Quarter: 2022Q4

REPORT INFORMATION
  Report Type: Report from Study
  Country: DE (occurrence: DE)
  Receive Date: 20221216
  Receipt Date: 20221228
  Transmission Date: 20230113
  Serious: Yes (Hospitalization)
  Sender: FDA-Public Use
  Company Number: DE-002147023-NVSC2021DE105057

PATIENT
  Sex: Female

DRUGS (8)
  1. UNSPECIFIED INGREDIENT [Suspect]
     Active Substance: UNSPECIFIED INGREDIENT
     Dosage: NO DOSE GIVEN
  2. METHOTREXATE SODIUM [Suspect]
     Active Substance: METHOTREXATE SODIUM
     Indication: Psoriatic arthropathy
     Dosage: 15 MG, QW
     Route: 058
     Dates: start: 20110922
  3. CELECOXIB [Suspect]
     Active Substance: CELECOXIB
     Dosage: 200 MG
     Dates: start: 20190212, end: 20200107
  4. CELECOXIB [Suspect]
     Active Substance: CELECOXIB
     Dosage: 60 MG
     Dates: start: 20211023
  5. ERELZI [Suspect]
     Active Substance: ETANERCEPT-SZZS
     Dosage: UNK
  6. HYRIMOZ [Suspect]
     Active Substance: ADALIMUMAB-ADAZ
     Indication: Psoriatic arthropathy
     Dosage: 40 MG (EVERY OTHER WEEK)
     Dates: start: 20210311
  7. HYRIMOZ [Suspect]
     Active Substance: ADALIMUMAB-ADAZ
     Dosage: 40 MG (EVERY OTHER WEEK)
     Dates: start: 20200107, end: 20200715
  8. ETORICOXIB [Suspect]
     Active Substance: ETORICOXIB
     Dosage: 60 MG
     Dates: start: 20201023

REACTIONS (2)
  - Osteoarthritis [Recovered/Resolved]
  - Injection site rash [Unknown]

NARRATIVE: CASE EVENT DATE: 20200812
